FAERS Safety Report 26019767 (Version 1)
Quarter: 2025Q4

REPORT INFORMATION
  Report Type: Spontaneous
  Country: EG (occurrence: EG)
  Receive Date: 20251110
  Receipt Date: 20251110
  Transmission Date: 20260117
  Serious: Yes (Life-Threatening, Hospitalization)
  Sender: HIKMA
  Company Number: EG-HIKMA PHARMACEUTICALS USA INC.-EG-H14001-25-11834

PATIENT
  Age: 50 Year
  Sex: Female
  Weight: 102 kg

DRUGS (6)
  1. CISPLATIN [Suspect]
     Active Substance: CISPLATIN
     Indication: Ovarian cancer recurrent
     Dosage: 43 MILLIGRAM, WEEKLY
     Route: 042
  2. CISPLATIN [Suspect]
     Active Substance: CISPLATIN
     Dosage: 43 MILLIGRAM, WEEKLY (WEEK 8)
     Route: 042
     Dates: start: 20250911
  3. PACLITAXEL [Suspect]
     Active Substance: PACLITAXEL
     Indication: Ovarian cancer recurrent
     Dosage: 100 MILLIGRAM, WEEKLY
     Route: 042
  4. PACLITAXEL [Suspect]
     Active Substance: PACLITAXEL
     Dosage: 100 MILLIGRAM, WEEKLY (WEEK 8)
     Route: 042
     Dates: start: 20250911
  5. DEXAMETHASONE [Concomitant]
     Active Substance: DEXAMETHASONE
     Indication: Chemotherapy side effect prophylaxis
     Dosage: UNK
     Route: 065
  6. PIRAFENE [Concomitant]
     Indication: Chemotherapy side effect prophylaxis
     Dosage: UNK
     Route: 065

REACTIONS (5)
  - Blood pressure systolic decreased [Recovered/Resolved]
  - Blood pressure diastolic decreased [Recovered/Resolved]
  - Respiratory rate increased [Recovered/Resolved]
  - Hypotension [Recovered/Resolved]
  - Dyspnoea [Recovered/Resolved]

NARRATIVE: CASE EVENT DATE: 20250911
